FAERS Safety Report 11402596 (Version 1)
Quarter: 2015Q3

REPORT INFORMATION
  Report Type: Spontaneous
  Country: US (occurrence: US)
  Receive Date: 20150821
  Receipt Date: 20150821
  Transmission Date: 20151125
  Serious: No
  Sender: FDA-Public Use
  Company Number: US-ROCHE-1283199

PATIENT
  Sex: Male

DRUGS (3)
  1. PEGASYS [Suspect]
     Active Substance: PEGINTERFERON ALFA-2A
     Indication: CHRONIC HEPATITIS C
     Route: 058
     Dates: start: 20130920
  2. BACTRIM DS [Concomitant]
     Active Substance: SULFAMETHOXAZOLE\TRIMETHOPRIM
     Route: 065
  3. RIBAVIRIN. [Suspect]
     Active Substance: RIBAVIRIN
     Indication: CHRONIC HEPATITIS C
     Dosage: 1200 MG ORALLY DAILY IN TWO DIVIDED DOSES
     Route: 048
     Dates: start: 20130920

REACTIONS (9)
  - Dry skin [Unknown]
  - Pruritus [Unknown]
  - Hair texture abnormal [Unknown]
  - Dry mouth [Unknown]
  - Irritability [Unknown]
  - Insomnia [Unknown]
  - Diarrhoea [Unknown]
  - Drug dose omission [Unknown]
  - Skin infection [Unknown]
